FAERS Safety Report 10106709 (Version 2)
Quarter: 2014Q2

REPORT INFORMATION
  Report Type: Spontaneous
  Country: JP (occurrence: JP)
  Receive Date: 20140424
  Receipt Date: 20140424
  Transmission Date: 20141212
  Serious: Yes (Hospitalization)
  Sender: FDA-Public Use
  Company Number: JP-ALLERGAN-1404665US

PATIENT
  Age: 59 Year
  Sex: Female

DRUGS (5)
  1. BOTOX [Suspect]
     Indication: MUSCLE SPASMS
     Dosage: 200 UNITS, SINGLE
     Route: 030
     Dates: start: 20130828, end: 20130828
  2. BOTOX [Suspect]
     Dosage: 200 UNITS, SINGLE
     Route: 030
     Dates: start: 20140108, end: 20140108
  3. TRAZENTA [Concomitant]
     Indication: PRODUCT USED FOR UNKNOWN INDICATION
  4. AMLODIN OD [Concomitant]
     Indication: PRODUCT USED FOR UNKNOWN INDICATION
     Dosage: UNK UNK, SINGLE
     Route: 030
     Dates: start: 201401, end: 201401
  5. AMLODIN OD [Concomitant]
     Dosage: UNK UNK, SINGLE
     Route: 030
     Dates: start: 201308, end: 201308

REACTIONS (3)
  - Epilepsy [Recovering/Resolving]
  - Convulsion [Recovering/Resolving]
  - Off label use [Unknown]
